FAERS Safety Report 6012303-8 (Version None)
Quarter: 2008Q4

REPORT INFORMATION
  Report Type: 
  Country: None (occurrence: None)
  Receive Date: 20081218
  Receipt Date: 20081107
  Transmission Date: 20090506
  Serious: No
  Sender: FDA-Public Use
  Company Number: US-ASTRAZENECA-2008UW24971

PATIENT
  Age: 84 Year
  Sex: Female

DRUGS (6)
  1. SYMBICORT [Suspect]
     Indication: TOTAL LUNG CAPACITY DECREASED
     Dosage: 160/4.5 MCG, 2 PUFFS A DAY
     Route: 055
     Dates: start: 20081019
  2. SYMBICORT [Suspect]
     Indication: ASTHMA
     Dosage: 160/4.5 MCG, 2 PUFFS A DAY
     Route: 055
     Dates: start: 20081019
  3. SYMBICORT [Suspect]
     Indication: CHRONIC OBSTRUCTIVE PULMONARY DISEASE
     Dosage: 160/4.5 MCG, 2 PUFFS A DAY
     Route: 055
     Dates: start: 20081019
  4. BENICAR [Concomitant]
  5. DARVOCET [Concomitant]
  6. COMBIVENT [Concomitant]

REACTIONS (2)
  - ORAL PAIN [None]
  - SINUSITIS [None]
